FAERS Safety Report 10011790 (Version 1)
Quarter: 2014Q1

REPORT INFORMATION
  Report Type: Spontaneous
  Country: US (occurrence: None)
  Receive Date: 20140313
  Receipt Date: 20140313
  Transmission Date: 20141002
  Serious: Yes (Other)
  Sender: FDA-Public Use
  Company Number: None

PATIENT
  Sex: 0

DRUGS (1)
  1. CHLORAPREP [Suspect]

REACTIONS (3)
  - Product packaging issue [None]
  - Product package associated injury [None]
  - Accidental exposure to product [None]
